FAERS Safety Report 5633218-0 (Version None)
Quarter: 2008Q1

REPORT INFORMATION
  Report Type: 
  Country: None (occurrence: None)
  Receive Date: 20080215
  Receipt Date: 20080204
  Transmission Date: 20080703
  Serious: Yes (Other)
  Sender: FDA-Public Use
  Company Number: 2007-00049

PATIENT
  Age: 85 Year
  Sex: Female
  Weight: 68 kg

DRUGS (2)
  1. VELCADE [Suspect]
     Indication: MYELODYSPLASTIC SYNDROME
     Dosage: 1.50 MG/M2, INTRAVENOUS
     Route: 042
     Dates: start: 20061031
  2. CYTARABINE [Suspect]
     Indication: MYELODYSPLASTIC SYNDROME
     Dosage: 20.00 MG/M2, SUBCUTANEOUS
     Route: 058
     Dates: start: 20061031

REACTIONS (3)
  - FALL [None]
  - HEAD INJURY [None]
  - TRAUMATIC HAEMATOMA [None]
